FAERS Safety Report 14211523 (Version 1)
Quarter: 2017Q4

REPORT INFORMATION
  Report Type: Spontaneous
  Country: US (occurrence: None)
  Receive Date: 20171121
  Receipt Date: 20171121
  Transmission Date: 20180321
  Serious: No
  Sender: FDA-Public Use
  Company Number: None

PATIENT
  Age: 33 Year
  Sex: Male
  Weight: 80.74 kg

DRUGS (2)
  1. CLOZAPINE 100MG [Suspect]
     Active Substance: CLOZAPINE
     Indication: SCHIZOPHRENIA
     Route: 048
     Dates: start: 20170823, end: 20170908
  2. CLOZAPINE 25MG [Suspect]
     Active Substance: CLOZAPINE

REACTIONS (5)
  - Diarrhoea [None]
  - Laboratory test abnormal [None]
  - Pyrexia [None]
  - Tachycardia [None]
  - Brain natriuretic peptide increased [None]

NARRATIVE: CASE EVENT DATE: 20170907
